FAERS Safety Report 20654220 (Version 2)
Quarter: 2022Q2

REPORT INFORMATION
  Report Type: Spontaneous
  Country: US (occurrence: None)
  Receive Date: 20220330
  Receipt Date: 20220427
  Transmission Date: 20220721
  Serious: No
  Sender: FDA-Public Use
  Company Number: 2022A093005

PATIENT
  Age: 26376 Day
  Sex: Female
  Weight: 64.4 kg

DRUGS (3)
  1. BREZTRI [Suspect]
     Active Substance: BUDESONIDE\FORMOTEROL\GLYCOPYRROLATE
     Indication: Asthma
     Dosage: 160/9/4.8MCG 2 PUFFS TWICE A DAY
     Route: 055
     Dates: start: 20220209
  2. BREZTRI [Suspect]
     Active Substance: BUDESONIDE\FORMOTEROL\GLYCOPYRROLATE
     Indication: Chronic obstructive pulmonary disease
     Dosage: 160/9/4.8MCG 2 PUFFS TWICE A DAY
     Route: 055
     Dates: start: 20220209
  3. BREZTRI [Suspect]
     Active Substance: BUDESONIDE\FORMOTEROL\GLYCOPYRROLATE
     Indication: Pneumonia
     Dosage: 160/9/4.8MCG 2 PUFFS TWICE A DAY
     Route: 055
     Dates: start: 20220209

REACTIONS (10)
  - Rhinorrhoea [Unknown]
  - Throat irritation [Unknown]
  - Nasopharyngitis [Unknown]
  - Pyrexia [Recovered/Resolved]
  - Body temperature increased [Recovered/Resolved]
  - Wheezing [Unknown]
  - Scratch [Unknown]
  - Device use issue [Unknown]
  - Product use issue [Unknown]
  - Device delivery system issue [Unknown]

NARRATIVE: CASE EVENT DATE: 20220223
